FAERS Safety Report 5190540-2 (Version None)
Quarter: 2006Q4

REPORT INFORMATION
  Report Type: 
  Country: None (occurrence: None)
  Receive Date: 20061222
  Receipt Date: 20060824
  Transmission Date: 20070319
  Serious: Yes (Death)
  Sender: FDA-Public Use
  Company Number: US-ELI_LILLY_AND_COMPANY-US200608005348

PATIENT
  Age: 85 Year
  Sex: Female
  Weight: 61.224 kg

DRUGS (3)
  1. SEROQUEL [Concomitant]
     Dates: start: 20030101
  2. METFORMIN HCL [Concomitant]
     Dates: start: 20030101
  3. ZYPREXA [Suspect]
     Dosage: 7.5 MG, UNK
     Dates: start: 20030101, end: 20050101

REACTIONS (2)
  - DEATH [None]
  - DIABETES MELLITUS [None]
